FAERS Safety Report 10932315 (Version 2)
Quarter: 2015Q2

REPORT INFORMATION
  Report Type: Spontaneous
  Country: US (occurrence: US)
  Receive Date: 20150320
  Receipt Date: 20150526
  Transmission Date: 20150821
  Serious: Yes (Other)
  Sender: FDA-Public Use
  Company Number: US-JNJFOC-20120605764

PATIENT

DRUGS (6)
  1. QUETIAPINE [Suspect]
     Active Substance: QUETIAPINE
     Indication: SCHIZOPHRENIA
     Route: 065
  2. CHOLINE [Suspect]
     Active Substance: CHOLINE
     Indication: SCHIZOPHRENIA
     Route: 065
  3. GALANTAMINE HBR [Suspect]
     Active Substance: GALANTAMINE HYDROBROMIDE
     Indication: SCHIZOPHRENIA
     Route: 065
  4. ZIPRASIDONE [Suspect]
     Active Substance: ZIPRASIDONE
     Indication: SCHIZOPHRENIA
     Route: 065
  5. RISPERIDONE. [Suspect]
     Active Substance: RISPERIDONE
     Indication: SCHIZOPHRENIA
     Route: 065
  6. ARIPIPRAZOLE. [Suspect]
     Active Substance: ARIPIPRAZOLE
     Indication: SCHIZOPHRENIA
     Route: 065

REACTIONS (18)
  - Restlessness [Unknown]
  - Abdominal pain [Unknown]
  - Malaise [Unknown]
  - Salivary hypersecretion [Unknown]
  - Dyspepsia [Unknown]
  - Diarrhoea [Unknown]
  - Vomiting [Unknown]
  - Nausea [Unknown]
  - Hyperhidrosis [Unknown]
  - Somnolence [Unknown]
  - Sleep disorder [Unknown]
  - Dry mouth [Unknown]
  - Insomnia [Unknown]
  - Decreased appetite [Unknown]
  - Syncope [Unknown]
  - Headache [Unknown]
  - Nasal congestion [Unknown]
  - Pyrexia [Unknown]
